FAERS Safety Report 9268244 (Version 2)
Quarter: 2014Q1

REPORT INFORMATION
  Report Type: Report from Study
  Country: US (occurrence: US)
  Receive Date: 20130502
  Receipt Date: 20140107
  Transmission Date: 20141002
  Serious: No
  Sender: FDA-Public Use
  Company Number: US-ALEXION-A201201982

PATIENT
  Sex: 0

DRUGS (10)
  1. SOLIRIS [Suspect]
     Indication: HAEMOLYTIC URAEMIC SYNDROME
     Dosage: 600 MG, SINGLE
     Route: 042
     Dates: start: 20111229, end: 20111229
  2. SOLIRIS [Suspect]
     Dosage: 600 MG, SINGLE
     Route: 042
     Dates: start: 20120110, end: 20120110
  3. SOLIRIS [Suspect]
     Dosage: 600 MG, Q2W
     Route: 042
  4. SINGULAIR [Concomitant]
     Indication: ASTHMA
     Dosage: 5 MG, QD
     Route: 048
  5. FLINTSTONE VITAMINS [Concomitant]
     Dosage: 2 GUMMIES, BID
     Route: 048
  6. ALBUTEROL SULFATE [Concomitant]
     Indication: ASTHMA
     Dosage: 0.63 MG/3ML, Q 4-6 HR PRN
  7. FERROUS SULFATE [Concomitant]
     Dosage: 325 MG, QD
     Route: 048
  8. ANECREAM 4% CREA [Concomitant]
     Dosage: 2 WEEKS PRIOR TO BLOOD DRAWS AND ACCESS
     Route: 061
  9. CETIRIZINE HYDROCHLORIDE [Concomitant]
     Dosage: (5MG/5ML) 7,5 ML PRN
     Route: 048
  10. FLUTICASONE PROPIONATE [Concomitant]
     Indication: ASTHMA
     Dosage: 60 MCG/ACT, 2 SQUIRTS EACH SIDE BID

REACTIONS (3)
  - Learning disorder [Not Recovered/Not Resolved]
  - Asthma [Not Recovered/Not Resolved]
  - Daydreaming [Not Recovered/Not Resolved]
